FAERS Safety Report 7157149-2 (Version None)
Quarter: 2010Q4

REPORT INFORMATION
  Report Type: 
  Country: None (occurrence: None)
  Receive Date: 20101214
  Receipt Date: 20091215
  Transmission Date: 20110411
  Serious: No
  Sender: FDA-Public Use
  Company Number: US-ASTRAZENECA-2009SE32209

PATIENT
  Age: 674 Month
  Sex: Female
  Weight: 61.7 kg

DRUGS (2)
  1. CRESTOR [Suspect]
     Indication: HYPERCHOLESTEROLAEMIA
     Route: 048
     Dates: start: 20090301
  2. AZAR [Concomitant]
     Indication: HYPERTENSION

REACTIONS (2)
  - DEAFNESS UNILATERAL [None]
  - TINNITUS [None]
